FAERS Safety Report 19082506 (Version 2)
Quarter: 2021Q2

REPORT INFORMATION
  Report Type: Report from Study
  Country: None (occurrence: AR)
  Receive Date: 20210401
  Receipt Date: 20210415
  Transmission Date: 20210717
  Serious: Yes (Death, Hospitalization, Other)
  Sender: FDA-Public Use
  Company Number: AR-ABBVIE-21K-007-3841630-00

PATIENT
  Age: 17 Year
  Sex: Female

DRUGS (1)
  1. HUMIRA [Suspect]
     Active Substance: ADALIMUMAB
     Indication: JUVENILE IDIOPATHIC ARTHRITIS
     Route: 058
     Dates: start: 20181105, end: 2020

REACTIONS (9)
  - Cardio-respiratory arrest [Fatal]
  - Oral candidiasis [Unknown]
  - Stomatitis [Unknown]
  - Tachycardia [Unknown]
  - Hospitalisation [Unknown]
  - Weight decreased [Unknown]
  - Bronchospasm [Unknown]
  - Pyrexia [Unknown]
  - General physical health deterioration [Unknown]

NARRATIVE: CASE EVENT DATE: 202103
